FAERS Safety Report 16441278 (Version 1)
Quarter: 2019Q2

REPORT INFORMATION
  Report Type: Not Available
  Country: US (occurrence: US)
  Receive Date: 20190617
  Receipt Date: 20190617
  Transmission Date: 20190711
  Serious: No
  Sender: FDA-Public Use
  Company Number: US-NEUROCRINE BIOSCIENCES INC.-2019NBI01525

PATIENT
  Sex: Female

DRUGS (8)
  1. INGREZZA [Suspect]
     Active Substance: VALBENAZINE
     Indication: TARDIVE DYSKINESIA
     Route: 048
     Dates: start: 20190514, end: 20190520
  2. GLIPIZIDE. [Concomitant]
     Active Substance: GLIPIZIDE
  3. OMEPRAZOLE. [Concomitant]
     Active Substance: OMEPRAZOLE
  4. INGREZZA [Suspect]
     Active Substance: VALBENAZINE
     Route: 048
     Dates: start: 20190521
  5. MULTIVITAMIN [Concomitant]
     Active Substance: VITAMINS
  6. ASPIRIN. [Concomitant]
     Active Substance: ASPIRIN
  7. ATORVASTATIN [Concomitant]
     Active Substance: ATORVASTATIN
  8. METFORMIN [Concomitant]
     Active Substance: METFORMIN HYDROCHLORIDE

REACTIONS (1)
  - Blood glucose increased [Not Recovered/Not Resolved]

NARRATIVE: CASE EVENT DATE: 2019
